FAERS Safety Report 16690161 (Version 2)
Quarter: 2019Q3

REPORT INFORMATION
  Report Type: Spontaneous
  Country: US (occurrence: US)
  Receive Date: 20190809
  Receipt Date: 20190916
  Transmission Date: 20191004
  Serious: Yes (Hospitalization, Disabling)
  Sender: FDA-Public Use
  Company Number: PHEH2019US032784

PATIENT
  Age: 67 Year
  Sex: Female
  Weight: 55.9 kg

DRUGS (1)
  1. RECLAST [Suspect]
     Active Substance: ZOLEDRONIC ACID
     Indication: OSTEOPOROSIS
     Dosage: 5 MG/KG, ONCE/SINGLE
     Route: 042
     Dates: start: 20190729, end: 20190729

REACTIONS (5)
  - Mobility decreased [Recovering/Resolving]
  - Pain [Not Recovered/Not Resolved]
  - Arthralgia [Recovering/Resolving]
  - Bone pain [Recovering/Resolving]
  - Tremor [Unknown]

NARRATIVE: CASE EVENT DATE: 20190730
